FAERS Safety Report 6435438-4 (Version None)
Quarter: 2009Q4

REPORT INFORMATION
  Report Type: 
  Country: None (occurrence: None)
  Receive Date: 20091106
  Receipt Date: 20091023
  Transmission Date: 20100525
  Serious: Yes (Hospitalization, Other)
  Sender: FDA-Public Use
  Company Number: SPI200900328

PATIENT
  Age: 65 Year
  Sex: Female
  Weight: 62.1 kg

DRUGS (14)
  1. AMITIZA [Suspect]
     Indication: IRRITABLE BOWEL SYNDROME
     Dosage: 8 MCG, BID, ORAL
     Route: 048
     Dates: start: 20090922, end: 20090927
  2. ARTHROTEC [Concomitant]
  3. MULTIVITAMIN [Concomitant]
  4. CALCIUM WITH VITAMIN D (CALCIUM CARBONATE, COLECALCIFEROL) TABLET [Concomitant]
  5. ZYRTEC [Concomitant]
  6. FIBER CAPSULE [Concomitant]
  7. ACTONEL [Concomitant]
  8. FISH OIL (FISH OIL) CAPSULE [Concomitant]
  9. ASPIRIN [Concomitant]
  10. AMBIEN CR [Concomitant]
  11. PROTONIX [Concomitant]
  12. CARDIZEM [Concomitant]
  13. MIRALAX [Concomitant]
  14. STOOL SOFTENER (DOCUSATE SODIUM) [Concomitant]

REACTIONS (12)
  - ABDOMINAL DISCOMFORT [None]
  - ABDOMINAL PAIN UPPER [None]
  - ASTHENIA [None]
  - BLOOD PRESSURE INCREASED [None]
  - DECREASED APPETITE [None]
  - DEHYDRATION [None]
  - DIARRHOEA [None]
  - ERUCTATION [None]
  - FLATULENCE [None]
  - NAUSEA [None]
  - TREMOR [None]
  - VOMITING [None]
